FAERS Safety Report 6086968-9 (Version None)
Quarter: 2009Q1

REPORT INFORMATION
  Report Type: 
  Country: None (occurrence: None)
  Receive Date: 20090219
  Receipt Date: 20090211
  Transmission Date: 20090719
  Serious: Yes (Hospitalization, Other)
  Sender: FDA-Public Use
  Company Number: 2009AL000825

PATIENT
  Age: 20 Year
  Sex: Male
  Weight: 75 kg

DRUGS (7)
  1. LIDOCAINE HCL [Suspect]
     Indication: SURGERY
     Dosage: 180 MG
  2. PROPOFOL [Suspect]
  3. MARIJUANA [Concomitant]
  4. FENTANYL [Concomitant]
  5. MIDAZOLAM HCL [Concomitant]
  6. DEXTROSE [Concomitant]
  7. EPINEPHRINE [Concomitant]

REACTIONS (19)
  - ABNORMAL BEHAVIOUR [None]
  - AGITATION [None]
  - AMNESIA [None]
  - BLOOD PROLACTIN INCREASED [None]
  - CONVERSION DISORDER [None]
  - CONVULSION [None]
  - DELUSION [None]
  - DISORIENTATION [None]
  - DRUG SCREEN POSITIVE [None]
  - DYSKINESIA [None]
  - HEAD BANGING [None]
  - HEADACHE [None]
  - MYOCLONUS [None]
  - OPISTHOTONUS [None]
  - PARANOIA [None]
  - PSYCHOTIC DISORDER [None]
  - SELF-INJURIOUS IDEATION [None]
  - UNRESPONSIVE TO STIMULI [None]
  - VOMITING [None]
